FAERS Safety Report 5882197-X (Version None)
Quarter: 2008Q3

REPORT INFORMATION
  Report Type: 
  Country: None (occurrence: None)
  Receive Date: 20080912
  Receipt Date: 20080724
  Transmission Date: 20090109
  Serious: No
  Sender: FDA-Public Use
  Company Number: US-ABBOTT-08P-163-0466259-00

PATIENT
  Sex: Female
  Weight: 86.26 kg

DRUGS (6)
  1. HUMIRA [Suspect]
     Indication: RHEUMATOID ARTHRITIS
     Route: 058
     Dates: start: 20080301, end: 20080501
  2. URSODEOXYCHOLIC ACID [Concomitant]
     Indication: BILIARY CIRRHOSIS
     Route: 048
  3. EQUIVALENT TO PREVACID [Concomitant]
     Indication: GASTROOESOPHAGEAL REFLUX DISEASE
     Route: 048
  4. PANTOPRAZOLE [Concomitant]
     Indication: GASTROOESOPHAGEAL REFLUX DISEASE
     Route: 048
  5. SERETIDE [Concomitant]
     Indication: ASTHMA
     Dosage: 250/50
     Route: 055
     Dates: start: 20070101
  6. PREDNISONE TAB [Concomitant]
     Indication: RHEUMATOID ARTHRITIS
     Route: 048
     Dates: start: 20080501

REACTIONS (1)
  - UPPER RESPIRATORY TRACT INFECTION [None]
